FAERS Safety Report 25353911 (Version 1)
Quarter: 2025Q2

REPORT INFORMATION
  Report Type: Spontaneous
  Country: US (occurrence: US)
  Receive Date: 20250523
  Receipt Date: 20250523
  Transmission Date: 20250716
  Serious: No
  Sender: MYLAN
  Company Number: US-MYLANLABS-2025M1039903

PATIENT
  Age: 8 Year
  Sex: Male
  Weight: 33.56 kg

DRUGS (1)
  1. METHYLPHENIDATE [Suspect]
     Active Substance: METHYLPHENIDATE
     Indication: Attention deficit hyperactivity disorder

REACTIONS (5)
  - Disturbance in attention [Unknown]
  - Application site rash [Recovered/Resolved]
  - Application site swelling [Recovered/Resolved]
  - Drug effect less than expected [Unknown]
  - Product substitution issue [Unknown]
